FAERS Safety Report 22089479 (Version 1)
Quarter: 2023Q1

REPORT INFORMATION
  Report Type: Spontaneous
  Country: US (occurrence: None)
  Receive Date: 20230312
  Receipt Date: 20230312
  Transmission Date: 20230417
  Serious: Yes (Life-Threatening, Other)
  Sender: FDA-Public Use
  Company Number: None

PATIENT
  Age: 28 Year
  Sex: Female
  Weight: 76.5 kg

DRUGS (1)
  1. IBUPROFEN [Suspect]
     Active Substance: IBUPROFEN
     Indication: Dysmenorrhoea
     Dates: start: 20230310, end: 20230310

REACTIONS (8)
  - Urticaria [None]
  - Swelling face [None]
  - Mouth swelling [None]
  - Tachycardia [None]
  - Hypertension [None]
  - Pallor [None]
  - Drug hypersensitivity [None]
  - Vomiting [None]

NARRATIVE: CASE EVENT DATE: 20230310
